FAERS Safety Report 12586475 (Version 4)
Quarter: 2016Q3

REPORT INFORMATION
  Report Type: Spontaneous
  Country: US (occurrence: US)
  Receive Date: 20160725
  Receipt Date: 20160929
  Transmission Date: 20161109
  Serious: Yes (Hospitalization)
  Sender: FDA-Public Use
  Company Number: US-PFIZER INC-2016310091

PATIENT
  Age: 56 Year
  Sex: Female
  Weight: 135.62 kg

DRUGS (25)
  1. IBRANCE [Suspect]
     Active Substance: PALBOCICLIB
     Indication: BREAST CANCER METASTATIC
     Dosage: 125 MG, UNK
     Dates: start: 2015
  2. TOPROL XL [Concomitant]
     Active Substance: METOPROLOL SUCCINATE
     Indication: VENTRICULAR EXTRASYSTOLES
     Dosage: 50 MG, DAILY, 1 TABLET EVERY PM
     Route: 048
     Dates: start: 2005
  3. IBRANCE [Suspect]
     Active Substance: PALBOCICLIB
     Dosage: 75 MG, DAILY
     Dates: start: 201512
  4. FASLODEX [Concomitant]
     Active Substance: FULVESTRANT
     Indication: BREAST CANCER
     Dosage: 250 MG INJECTIONS, 2 INJECTIONS ONCE A MONTH INTRAMUSCULAR IN BUTTOCKS, MONTHLY
     Route: 030
     Dates: start: 201501
  5. FASLODEX [Concomitant]
     Active Substance: FULVESTRANT
     Indication: HORMONE LEVEL ABNORMAL
     Dosage: 500 MG, CYCLIC(2-250MG INJECTIONS EVERY 28 DAYS)
     Route: 030
     Dates: start: 2015
  6. RELAFEN [Concomitant]
     Active Substance: NABUMETONE
     Indication: FIBROMYALGIA
     Dosage: 750 MG, 1-2 TIMES A DAY
     Route: 048
     Dates: start: 2008
  7. VITAMIN D /00107901/ [Concomitant]
     Active Substance: ERGOCALCIFEROL
     Indication: VITAMIN D DEFICIENCY
     Dosage: 50000 IU, 2X/WEEK, 50,000 UNITS 1 CAPSULE
     Route: 048
     Dates: start: 2009
  8. XANAX [Concomitant]
     Active Substance: ALPRAZOLAM
     Indication: ANXIETY
     Dosage: UNK
     Dates: start: 2006
  9. ZOFRAN [Concomitant]
     Active Substance: ONDANSETRON HYDROCHLORIDE
     Indication: NAUSEA
     Dosage: 4 MG, PRN, AS NEEDED
     Route: 048
     Dates: start: 2014
  10. TIZANIDINE. [Concomitant]
     Active Substance: TIZANIDINE
     Dosage: UNK
     Dates: start: 2008
  11. OMEPRAZOLE. [Concomitant]
     Active Substance: OMEPRAZOLE
     Indication: NAUSEA
     Dosage: 20 MG, DAILY, EVERY DAY IN MORNING
     Route: 048
     Dates: start: 201511
  12. TRAMADOL. [Concomitant]
     Active Substance: TRAMADOL
     Dosage: UNK
     Dates: start: 2009
  13. TIZANIDINE. [Concomitant]
     Active Substance: TIZANIDINE
     Indication: MUSCLE DISORDER
     Dosage: 1 MG, AS NEEDED, 1 MG TABLET PRN AT BEDTIME
     Route: 048
     Dates: start: 2008
  14. XANAX [Concomitant]
     Active Substance: ALPRAZOLAM
     Indication: INSOMNIA
     Dosage: 0.25 MG TABLET , 1-2 TABLETS AT BEDTIME, DAILY
     Route: 048
     Dates: start: 2000
  15. XGEVA [Concomitant]
     Active Substance: DENOSUMAB
     Dosage: UNK
     Dates: start: 2015
  16. ROBAXIN [Concomitant]
     Active Substance: METHOCARBAMOL
     Dosage: UNK
  17. IBRANCE [Suspect]
     Active Substance: PALBOCICLIB
     Dosage: 75 MG, CYCLIC, EVERY DAY FOR 21 DAYS AND THEN OFF FOR 7 DAYS
     Route: 048
     Dates: end: 20160513
  18. TRAMADOL. [Concomitant]
     Active Substance: TRAMADOL
     Indication: PAIN
     Dosage: 50 MG, AS NEEDED UP TO 4 TIMES A DAY
     Route: 048
     Dates: start: 2008
  19. VICODIN [Concomitant]
     Active Substance: ACETAMINOPHEN\HYDROCODONE BITARTRATE
     Indication: PAIN
     Dosage: [HYDROCODONE BITARTRATE 7.5MG]/[PARACETAMOL 325MG], DAILY, 1/2 TO 1 TABLET 3-4 TIMES
     Dates: start: 2008
  20. IBRANCE [Suspect]
     Active Substance: PALBOCICLIB
     Dosage: 100 MG, UNK
  21. OMEPRAZOLE. [Concomitant]
     Active Substance: OMEPRAZOLE
     Indication: ABDOMINAL PAIN UPPER
  22. LEVOTHYROXINE. [Concomitant]
     Active Substance: LEVOTHYROXINE
     Indication: HYPOTHYROIDISM
     Dosage: 75 UG, 1X/DAY, IN THE AM
     Route: 048
  23. LISINOPRIL. [Concomitant]
     Active Substance: LISINOPRIL
     Indication: HYPERTENSION
     Dosage: 30 MG, 1X/DAY, IN AM
     Route: 048
  24. RELAFEN [Concomitant]
     Active Substance: NABUMETONE
     Indication: OSTEOARTHRITIS
  25. XGEVA [Concomitant]
     Active Substance: DENOSUMAB
     Indication: BREAST CANCER
     Dosage: INJECTION INTRAMUSCULAR EVERY 90 DAYS
     Route: 030
     Dates: start: 201501

REACTIONS (7)
  - Abdominal pain upper [Recovered/Resolved]
  - Nausea [Recovered/Resolved]
  - White blood cell count decreased [Not Recovered/Not Resolved]
  - Insomnia [Unknown]
  - Localised infection [Unknown]
  - Tendon pain [Unknown]
  - Arthralgia [Not Recovered/Not Resolved]

NARRATIVE: CASE EVENT DATE: 201505
